FAERS Safety Report 6183967-3 (Version None)
Quarter: 2009Q2

REPORT INFORMATION
  Report Type: 
  Country: None (occurrence: None)
  Receive Date: 20090506
  Receipt Date: 20090420
  Transmission Date: 20091009
  Serious: Yes (Death, Life-Threatening)
  Sender: FDA-Public Use
  Company Number: 000708

PATIENT

DRUGS (1)
  1. PROSTAVASIN /00501501/ (PROSTAVASIN) [Suspect]

REACTIONS (1)
  - MYOCARDIAL INFARCTION [None]
